FAERS Safety Report 11995668 (Version 1)
Quarter: 2016Q1

REPORT INFORMATION
  Report Type: Other
  Country: US (occurrence: US)
  Receive Date: 20160203
  Receipt Date: 20160203
  Transmission Date: 20160526
  Serious: Yes (Hospitalization, Other)
  Sender: FDA-Public Use
  Company Number: US-SHIRE-US201600467

PATIENT
  Age: 29 Year
  Sex: Female

DRUGS (3)
  1. FIRAZYR [Suspect]
     Active Substance: ICATIBANT ACETATE
     Indication: HEREDITARY ANGIOEDEMA
     Dosage: 30 MG, AS REQ^D
     Route: 058
     Dates: start: 20100303
  2. CINRYZE [Suspect]
     Active Substance: HUMAN C1-ESTERASE INHIBITOR
     Indication: HEREDITARY ANGIOEDEMA
     Dosage: 1000 UNITS, OTHER (THREE TIMES PER WEEK)
     Route: 042
     Dates: start: 20100303
  3. CINRYZE [Suspect]
     Active Substance: HUMAN C1-ESTERASE INHIBITOR
     Indication: PROPHYLAXIS

REACTIONS (3)
  - Inappropriate schedule of drug administration [Not Recovered/Not Resolved]
  - Hereditary angioedema [Not Recovered/Not Resolved]
  - Product use issue [Recovered/Resolved]

NARRATIVE: CASE EVENT DATE: 20110113
